FAERS Safety Report 25358836 (Version 1)
Quarter: 2025Q2

REPORT INFORMATION
  Report Type: Report from Study
  Country: US (occurrence: US)
  Receive Date: 20250526
  Receipt Date: 20250526
  Transmission Date: 20250716
  Serious: Yes (Other)
  Sender: MALLINCKRODT
  Company Number: US-MALLINCKRODT-MNK202502912

PATIENT
  Age: 22 Year
  Sex: Male

DRUGS (2)
  1. CORTICOTROPIN [Suspect]
     Active Substance: CORTICOTROPIN
     Indication: Dermatomyositis
  2. CORTICOTROPIN [Suspect]
     Active Substance: CORTICOTROPIN
     Indication: Dermatomyositis

REACTIONS (9)
  - Dermatomyositis [Recovered/Resolved]
  - Polymyositis [Recovered/Resolved]
  - Condition aggravated [Recovered/Resolved]
  - Weight fluctuation [Unknown]
  - Hypersomnia [Unknown]
  - Abnormal faeces [Recovered/Resolved]
  - Stomatitis [Recovered/Resolved]
  - Nervousness [Unknown]
  - Stress [Unknown]

NARRATIVE: CASE EVENT DATE: 20250501
